FAERS Safety Report 22270110 (Version 1)
Quarter: 2023Q2

REPORT INFORMATION
  Report Type: Spontaneous
  Country: US (occurrence: None)
  Receive Date: 20230428
  Receipt Date: 20230428
  Transmission Date: 20230722
  Serious: Yes (Hospitalization)
  Sender: FDA-Public Use
  Company Number: None

PATIENT
  Sex: Female

DRUGS (2)
  1. AMBRISENTAN [Suspect]
     Active Substance: AMBRISENTAN
     Indication: Pulmonary arterial hypertension
     Dosage: FREQUENCY : DAILY;?
     Route: 048
     Dates: start: 201908
  2. TYVASO [Suspect]
     Active Substance: TREPROSTINIL

REACTIONS (5)
  - Fluid retention [None]
  - Headache [None]
  - Arthralgia [None]
  - Incorrect dose administered [None]
  - Oxygen saturation decreased [None]
